FAERS Safety Report 13401861 (Version 1)
Quarter: 2017Q2

REPORT INFORMATION
  Report Type: Spontaneous
  Country: ZA (occurrence: ZA)
  Receive Date: 20170404
  Receipt Date: 20170404
  Transmission Date: 20170830
  Serious: Yes (Other)
  Sender: FDA-Public Use
  Company Number: ZA-MYLANLABS-2017M1020670

PATIENT

DRUGS (6)
  1. RIVOTRIL [Concomitant]
     Active Substance: CLONAZEPAM
     Indication: EPILEPSY
     Dosage: 2 MG, UNK
     Route: 048
  2. DIAGLUCIDE [Concomitant]
     Active Substance: GLICLAZIDE
     Indication: DIABETES MELLITUS
     Dosage: 60 MG, UNK
     Route: 048
  3. BAYER ASPIRIN [Concomitant]
     Active Substance: ASPIRIN
     Indication: BLOOD DISORDER
     Dosage: 100 MG, UNK
     Route: 048
  4. AMILORETIC [Concomitant]
     Indication: HYPERTENSION
     Dosage: UNK
     Route: 048
  5. MYLAN METFORMIN 850 MG [Suspect]
     Active Substance: METFORMIN HYDROCHLORIDE
     Indication: DIABETES MELLITUS
     Dosage: 850 MG, UNK
     Route: 048
  6. KESSAR [Concomitant]
     Active Substance: TAMOXIFEN CITRATE
     Indication: CHEMOTHERAPY
     Dosage: 20 MG, UNK
     Route: 048

REACTIONS (1)
  - Epilepsy [Unknown]
